FAERS Safety Report 7985893-3 (Version None)
Quarter: 2011Q4

REPORT INFORMATION
  Report Type: 
  Country: None (occurrence: None)
  Receive Date: 20111216
  Receipt Date: 20111206
  Transmission Date: 20120403
  Serious: Yes (Hospitalization)
  Sender: FDA-Public Use
  Company Number: US-BAYER-2011-045202

PATIENT
  Age: 31 Year
  Sex: Female
  Weight: 72 kg

DRUGS (7)
  1. DARVOCET [Concomitant]
     Indication: PAIN
     Dosage: UNK UNK, PRN
     Route: 048
     Dates: start: 20070301
  2. YASMIN [Suspect]
     Indication: CONTRACEPTION
     Dosage: UNK
     Route: 048
     Dates: start: 20001201, end: 20021001
  3. LEVAQUIN [Concomitant]
     Dosage: 500 MG, UNK
     Route: 048
  4. OXYCODONE HCL AND ACETAMINOPHEN [Concomitant]
     Dosage: 5 - 500 MG
     Route: 048
  5. YASMIN [Suspect]
     Dosage: UNK
     Route: 048
     Dates: start: 20031001, end: 20070301
  6. YAZ [Suspect]
     Indication: CONTRACEPTION
     Dosage: UNK
     Route: 048
     Dates: start: 20070301, end: 20091001
  7. DICYCLOMINE [Concomitant]
     Dosage: 10 MG, BID
     Route: 048

REACTIONS (6)
  - PAIN [None]
  - CHOLELITHIASIS [None]
  - CHOLECYSTITIS CHRONIC [None]
  - VOMITING [None]
  - ABDOMINAL PAIN [None]
  - NAUSEA [None]
